FAERS Safety Report 19375214 (Version 2)
Quarter: 2021Q4

REPORT INFORMATION
  Report Type: Spontaneous
  Country: US (occurrence: US)
  Receive Date: 20210604
  Receipt Date: 20211009
  Transmission Date: 20220303
  Serious: Yes (Death)
  Sender: FDA-Public Use
  Company Number: US-ROCHE-2842148

PATIENT
  Age: 65 Year
  Sex: Male

DRUGS (2)
  1. RITUXAN [Suspect]
     Active Substance: RITUXIMAB
     Indication: Myelitis transverse
     Dosage: 05/JAN/2021 LAST DOSE
     Route: 065
     Dates: start: 20161114
  2. RITUXAN [Suspect]
     Active Substance: RITUXIMAB
     Indication: Demyelination

REACTIONS (2)
  - Sepsis [Fatal]
  - Off label use [Fatal]

NARRATIVE: CASE EVENT DATE: 20210208
